FAERS Safety Report 6807389-4 (Version None)
Quarter: 2010Q2

REPORT INFORMATION
  Report Type: 
  Country: None (occurrence: None)
  Receive Date: 20100629
  Receipt Date: 20080916
  Transmission Date: 20101027
  Serious: No
  Sender: FDA-Public Use
  Company Number: US-PFIZER INC-2008067335

PATIENT
  Sex: Male
  Weight: 134.1 kg

DRUGS (12)
  1. VIAGRA [Suspect]
     Indication: ERECTILE DYSFUNCTION
     Route: 048
     Dates: start: 20080729
  2. VIAGRA [Suspect]
     Indication: ORGANIC ERECTILE DYSFUNCTION
  3. METFORMIN/PIOGLITAZONE [Concomitant]
  4. GLYBURIDE [Concomitant]
  5. LANTUS [Concomitant]
  6. TOPROL-XL [Concomitant]
  7. NORVASC [Concomitant]
  8. HYDROCHLOROTHIAZIDE [Concomitant]
  9. POTASSIUM [Concomitant]
  10. LYRICA [Concomitant]
  11. LEVITRA [Concomitant]
  12. DRUG, UNSPECIFIED [Concomitant]

REACTIONS (1)
  - DRUG INEFFECTIVE [None]
